FAERS Safety Report 5587399-8 (Version None)
Quarter: 2007Q4

REPORT INFORMATION
  Report Type: 
  Country: None (occurrence: None)
  Receive Date: 20071205
  Receipt Date: 20070327
  Transmission Date: 20080405
  Serious: Yes (Other)
  Sender: FDA-Public Use
  Company Number: HQWYE026128MAR07

PATIENT
  Age: 20 Year
  Sex: Female

DRUGS (2)
  1. EFFEXOR XR [Suspect]
     Indication: SUICIDAL IDEATION
     Dosage: 150 MG 1X PER 1 DAY ; 75 MG 1X PER 1 DAY
     Dates: start: 20070306, end: 20070319
  2. EFFEXOR XR [Suspect]
     Indication: SUICIDAL IDEATION
     Dosage: 150 MG 1X PER 1 DAY ; 75 MG 1X PER 1 DAY
     Dates: start: 20070320

REACTIONS (1)
  - SUICIDAL IDEATION [None]
